FAERS Safety Report 19456559 (Version 3)
Quarter: 2021Q3

REPORT INFORMATION
  Report Type: Spontaneous
  Country: CA (occurrence: CA)
  Receive Date: 20210624
  Receipt Date: 20210712
  Transmission Date: 20211014
  Serious: Yes (Other)
  Sender: FDA-Public Use
  Company Number: CA-AUROBINDO-AUR-APL-2021-025835

PATIENT
  Age: 66 Year
  Sex: Male

DRUGS (1)
  1. AURO?LEVETIRACETAM TABLET [Suspect]
     Active Substance: LEVETIRACETAM
     Indication: SEIZURE
     Dosage: 750 MILLIGRAM, TWO TIMES A DAY
     Route: 065

REACTIONS (1)
  - Hallucination [Recovered/Resolved]
